FAERS Safety Report 9271183 (Version 1)
Quarter: 2013Q2

REPORT INFORMATION
  Report Type: Spontaneous
  Country: US (occurrence: US)
  Receive Date: 20130506
  Receipt Date: 20130506
  Transmission Date: 20140414
  Serious: Yes (Death)
  Sender: FDA-Public Use
  Company Number: PHEH2013US009756

PATIENT
  Sex: Male

DRUGS (3)
  1. SANDOSTATIN [Suspect]
     Indication: CARCINOID TUMOUR
     Dosage: UNK UKN, UNK
  2. SANDOSTATIN [Suspect]
     Dosage: THREE INJECTION PER DAY
  3. MORPHINE [Concomitant]
     Dosage: UNK UKN, UNK

REACTIONS (3)
  - Death [Fatal]
  - Fatigue [Unknown]
  - Asthenia [Unknown]
